FAERS Safety Report 5988508-9 (Version None)
Quarter: 2008Q4

REPORT INFORMATION
  Report Type: 
  Country: None (occurrence: None)
  Receive Date: 20081204
  Receipt Date: 20081124
  Transmission Date: 20090506
  Serious: Yes (Hospitalization)
  Sender: FDA-Public Use
  Company Number: GXKR2008NL11310

PATIENT
  Age: 79 Year
  Sex: Female

DRUGS (6)
  1. METFORMIN HCL [Suspect]
     Indication: DIABETES MELLITUS
     Dosage: 1 DF, BID, ORAL
     Route: 048
     Dates: start: 20080930, end: 20081015
  2. PRAVASTATIN (PRAVASTATIN), 10 MG [Concomitant]
  3. TIOTROPIUM (TIOROPIUM) [Concomitant]
  4. MONOCEDOCARD ( ISOSORBIDE MONONITRATE), 50 MG [Concomitant]
  5. GLIMEPIRIDE (GLIMEPIRIDE), 4 MG [Concomitant]
  6. ACETYLSALICYLZUUR (ACETYLSALICYLIC ACID), 80 MG [Concomitant]

REACTIONS (3)
  - DIZZINESS [None]
  - MALAISE [None]
  - SYNCOPE [None]
